FAERS Safety Report 18238776 (Version 1)
Quarter: 2020Q3

REPORT INFORMATION
  Report Type: Report from Study
  Country: RO (occurrence: RO)
  Receive Date: 20200907
  Receipt Date: 20200907
  Transmission Date: 20201103
  Serious: Yes (Other)
  Sender: FDA-Public Use
  Company Number: RO-TAKEDA-2020TUS037020

PATIENT
  Age: 76 Year
  Sex: Male

DRUGS (12)
  1. IXAZOMIB [Suspect]
     Active Substance: IXAZOMIB
     Indication: PLASMA CELL MYELOMA
     Dosage: 4 MILLIGRAM
     Route: 048
     Dates: start: 20200515
  2. OMNIC TOCAS [Concomitant]
     Active Substance: TAMSULOSIN HYDROCHLORIDE
     Indication: PROSTATITIS
     Dosage: UNK UNK, QD
     Route: 065
  3. LENALIDOMIDE [Suspect]
     Active Substance: LENALIDOMIDE
     Indication: PLASMA CELL MYELOMA
     Dosage: 5 MILLIGRAM
     Route: 065
     Dates: start: 20200515, end: 20200723
  4. THIOSSEN [Concomitant]
     Active Substance: .ALPHA.-LIPOIC ACID
     Indication: NERVOUS SYSTEM DISORDER
     Dosage: UNK UNK, QD
  5. CONTROL                            /00033401/ [Concomitant]
     Active Substance: LIDOCAINE
     Indication: PROPHYLAXIS
     Dosage: UNK
  6. URISAN                             /00512801/ [Concomitant]
     Indication: CHRONIC KIDNEY DISEASE
     Dosage: UNK UNK, QD
     Route: 065
  7. NEBILET [Concomitant]
     Active Substance: NEBIVOLOL
     Indication: HYPERTENSION
     Dosage: UNK UNK, QD
     Route: 065
  8. DHC [Concomitant]
     Active Substance: DIHYDROCODEINE BITARTRATE
     Indication: PAIN
     Dosage: UNK UNK, QD
  9. DEXAMETHASONE. [Suspect]
     Active Substance: DEXAMETHASONE
     Indication: PLASMA CELL MYELOMA
     Dosage: 40 MILLIGRAM, 1/WEEK
     Route: 065
     Dates: start: 20200515
  10. ELIQUIS [Concomitant]
     Active Substance: APIXABAN
     Indication: PLASMA CELL MYELOMA
     Dosage: UNK UNK, QD
     Route: 065
  11. CORDARONE [Concomitant]
     Active Substance: AMIODARONE HYDROCHLORIDE
     Indication: HYPERTENSION
     Dosage: UNK UNK, QD
     Route: 065
  12. FUROSEMIDE. [Concomitant]
     Active Substance: FUROSEMIDE
     Indication: HYPERTENSION
     Dosage: UNK UNK, QD
     Route: 065

REACTIONS (1)
  - Haemoglobin decreased [Not Recovered/Not Resolved]

NARRATIVE: CASE EVENT DATE: 20200827
